FAERS Safety Report 5802017-9 (Version None)
Quarter: 2008Q3

REPORT INFORMATION
  Report Type: 
  Country: None (occurrence: None)
  Receive Date: 20080702
  Receipt Date: 20080626
  Transmission Date: 20090109
  Serious: Yes (Death)
  Sender: FDA-Public Use
  Company Number: 163-21880-08061680

PATIENT
  Age: 64 Year
  Sex: Male

DRUGS (1)
  1. REVLIMID [Suspect]
     Indication: MULTIPLE SCLEROSIS
     Dosage: X21 DAYS EVERY 28 DAYS, ORAL
     Route: 048
     Dates: start: 20080121

REACTIONS (1)
  - DEATH [None]
